FAERS Safety Report 18850984 (Version 1)
Quarter: 2021Q1

REPORT INFORMATION
  Report Type: Report from Study
  Country: TW (occurrence: TW)
  Receive Date: 20210204
  Receipt Date: 20210204
  Transmission Date: 20210420
  Serious: Yes (Other)
  Sender: FDA-Public Use
  Company Number: TW-INCYTE CORPORATION-2019IN007964

PATIENT

DRUGS (162)
  1. JAKAVI [Suspect]
     Active Substance: RUXOLITINIB
     Dosage: 20 MG, QD
     Route: 048
     Dates: start: 20181002, end: 20190408
  2. CHLORPHENIRAMINE [CHLORPHENAMINE] [Concomitant]
     Active Substance: CHLORPHENIRAMINE
     Dosage: 5 MG (AMPOULE)
     Route: 042
     Dates: start: 20180207, end: 20180207
  3. CHLORPHENIRAMINE [CHLORPHENAMINE] [Concomitant]
     Active Substance: CHLORPHENIRAMINE
     Dosage: 5 MG (AMPOULE)
     Route: 042
     Dates: start: 20180807, end: 20180807
  4. CHLORPHENIRAMINE [CHLORPHENAMINE] [Concomitant]
     Active Substance: CHLORPHENIRAMINE
     Dosage: 5 MG (AMPOULE)
     Route: 042
     Dates: start: 20181002, end: 20181002
  5. CHLORPHENIRAMINE [CHLORPHENAMINE] [Concomitant]
     Active Substance: CHLORPHENIRAMINE
     Dosage: 5 MG (AMPOULE)
     Route: 042
     Dates: start: 20181030, end: 20181030
  6. CHLORPHENIRAMINE [CHLORPHENAMINE] [Concomitant]
     Active Substance: CHLORPHENIRAMINE
     Dosage: 5 MG (AMPOULE)
     Route: 042
     Dates: start: 20181228, end: 20181228
  7. CHLORPHENIRAMINE [CHLORPHENAMINE] [Concomitant]
     Active Substance: CHLORPHENIRAMINE
     Dosage: 5 MG (AMPOULE)
     Route: 042
     Dates: start: 20190820, end: 20190820
  8. CHLORPHENIRAMINE [CHLORPHENAMINE] [Concomitant]
     Active Substance: CHLORPHENIRAMINE
     Dosage: 5 MG (AMPOULE)
     Route: 042
     Dates: start: 20190917, end: 20190917
  9. CHLORPHENIRAMINE [CHLORPHENAMINE] [Concomitant]
     Active Substance: CHLORPHENIRAMINE
     Dosage: UNK
     Route: 065
  10. DIOSMECTITE [Concomitant]
     Active Substance: MONTMORILLONITE
     Indication: DIARRHOEA
     Dosage: UNK (3 G/ PKG)
     Route: 048
     Dates: start: 20191204, end: 20191206
  11. DENOSUMAB [Concomitant]
     Active Substance: DENOSUMAB
     Dosage: 60 MG (VIAL)
     Route: 058
     Dates: start: 20190909, end: 20190909
  12. INSULIN [Concomitant]
     Active Substance: INSULIN NOS
     Dosage: 2 U (VIAL)
     Route: 058
     Dates: start: 20191207, end: 20191207
  13. PIOGLITAZONE. [Concomitant]
     Active Substance: PIOGLITAZONE
     Indication: DIABETES MELLITUS
     Dosage: 30 MG
     Route: 048
     Dates: start: 20180110, end: 20180529
  14. SAROTEN [Concomitant]
     Active Substance: AMITRIPTYLINE
     Dosage: 50 MG
     Route: 048
     Dates: start: 20180926, end: 20181024
  15. SENNOSIDE A+B [Concomitant]
     Active Substance: SENNOSIDES A AND B
     Dosage: 24 MG
     Route: 048
     Dates: start: 20181218, end: 20181218
  16. SILYMARIN [Concomitant]
     Active Substance: DIETARY SUPPLEMENT\HERBALS\MILK THISTLE
     Indication: PRODUCT USED FOR UNKNOWN INDICATION
     Dosage: 70 MG
     Route: 048
     Dates: start: 20180530, end: 20180806
  17. SITAGLIPTIN METFORMIN [Concomitant]
     Active Substance: METFORMIN HYDROCHLORIDE\SITAGLIPTIN PHOSPHATE
     Dosage: UNK
     Route: 048
     Dates: start: 20191009
  18. CEFOXITIN [Concomitant]
     Active Substance: CEFOXITIN SODIUM
     Indication: PYREXIA
     Dosage: UNK (1 GM/ VIAL)
     Route: 042
     Dates: start: 20190116, end: 20190117
  19. POTASSIUM GLUCONATE [Concomitant]
     Active Substance: POTASSIUM GLUCONATE
     Indication: VOMITING
     Dosage: 1785 MG
     Route: 048
     Dates: start: 20181224, end: 20181231
  20. TAZOCIN [Concomitant]
     Active Substance: PIPERACILLIN SODIUM\TAZOBACTAM SODIUM
     Dosage: 2.25 G (VIAL)
     Route: 042
     Dates: start: 20181218, end: 20181219
  21. POLYMIGEL [Concomitant]
     Indication: VOMITING
     Dosage: 244 MG
     Route: 048
     Dates: start: 20191206, end: 20191211
  22. JAKAVI [Suspect]
     Active Substance: RUXOLITINIB
     Dosage: 20 MG, QD
     Route: 048
     Dates: end: 20180626
  23. ALPRAZOLAM. [Concomitant]
     Active Substance: ALPRAZOLAM
     Indication: INSOMNIA
     Dosage: 0.5 MG
     Route: 048
     Dates: start: 20190820, end: 20190911
  24. CHLORPHENIRAMINE [CHLORPHENAMINE] [Concomitant]
     Active Substance: CHLORPHENIRAMINE
     Dosage: 5 MG (AMPOULE)
     Route: 042
     Dates: start: 20180710, end: 20180710
  25. CHLORPHENIRAMINE [CHLORPHENAMINE] [Concomitant]
     Active Substance: CHLORPHENIRAMINE
     Dosage: 5 MG (AMPOULE)
     Route: 042
     Dates: start: 20180904, end: 20180904
  26. CHLORPHENIRAMINE [CHLORPHENAMINE] [Concomitant]
     Active Substance: CHLORPHENIRAMINE
     Dosage: 5 MG (AMPOULE)
     Route: 042
     Dates: start: 20190212, end: 20190212
  27. CHLORPHENIRAMINE [CHLORPHENAMINE] [Concomitant]
     Active Substance: CHLORPHENIRAMINE
     Dosage: 5 MG (AMPOULE)
     Route: 042
     Dates: start: 20191008, end: 20191008
  28. CHLORPHENIRAMINE [CHLORPHENAMINE] [Concomitant]
     Active Substance: CHLORPHENIRAMINE
     Dosage: 5 MG (AMPOULE)
     Route: 042
     Dates: start: 20191105, end: 20191105
  29. CHLORPHENIRAMINE [CHLORPHENAMINE] [Concomitant]
     Active Substance: CHLORPHENIRAMINE
     Dosage: 5 MG (AMPOULE)
     Route: 042
     Dates: start: 20191210, end: 20191210
  30. INSULIN DETEMIR [Concomitant]
     Active Substance: INSULIN DETEMIR
     Dosage: UNK (DOSE 17)
     Route: 058
     Dates: start: 20181225, end: 20190102
  31. PINSAUN [Concomitant]
     Indication: INSOMNIA
     Dosage: 50 MG
     Route: 048
     Dates: start: 20190306, end: 20190403
  32. SITAGLIPTIN METFORMIN [Concomitant]
     Active Substance: METFORMIN HYDROCHLORIDE\SITAGLIPTIN PHOSPHATE
     Dosage: UNK
     Route: 048
     Dates: start: 20190820, end: 20190820
  33. ACETAMINOPHEN. [Concomitant]
     Active Substance: ACETAMINOPHEN
     Indication: URINARY TRACT INFECTION
     Dosage: 500 MG
     Route: 048
     Dates: start: 20191203, end: 20191203
  34. ACETAMINOPHEN. [Concomitant]
     Active Substance: ACETAMINOPHEN
     Indication: OSTEOPOROSIS
     Dosage: 500 MG
     Route: 048
     Dates: start: 20191007, end: 20191007
  35. ACETAMINOPHEN. [Concomitant]
     Active Substance: ACETAMINOPHEN
     Dosage: 500 MG
     Route: 048
     Dates: start: 20191226, end: 20191227
  36. LORAZEPAM;TEMAZEPAM [Concomitant]
     Indication: PYREXIA
     Dosage: 1 MG
     Route: 048
     Dates: start: 20181221, end: 20181221
  37. OXETHAZAINE [Concomitant]
     Active Substance: OXETHAZAINE
     Indication: URINARY TRACT INFECTION
     Dosage: UNK (OXETHAZAINE/ POLYMIGEL)
     Route: 048
     Dates: start: 20190917, end: 20191001
  38. TAZOCIN [Concomitant]
     Active Substance: PIPERACILLIN SODIUM\TAZOBACTAM SODIUM
     Indication: PYREXIA
     Dosage: 4.5 G (VIAL)
     Route: 042
     Dates: start: 20181218, end: 20181218
  39. TAZOCIN [Concomitant]
     Active Substance: PIPERACILLIN SODIUM\TAZOBACTAM SODIUM
     Dosage: 2.25 UNK
     Route: 042
     Dates: start: 20181226
  40. UNASYN [SULTAMICILLIN TOSILATE] [Concomitant]
     Active Substance: SULTAMICILLIN TOSYLATE
     Indication: PYREXIA
     Dosage: 1.5 G
     Route: 042
     Dates: start: 20190102, end: 20190107
  41. VANCOMYCIN [Concomitant]
     Active Substance: VANCOMYCIN
     Indication: PYREXIA
     Dosage: 125 MG  (VIAL)
     Route: 048
     Dates: start: 20191205, end: 20191211
  42. POLYMIGEL [Concomitant]
     Dosage: 244 MG
     Route: 048
     Dates: start: 20191206, end: 20191211
  43. JAKAVI [Suspect]
     Active Substance: RUXOLITINIB
     Dosage: 20 MG, QD
     Route: 048
     Dates: start: 20180710, end: 20180806
  44. JAKAVI [Suspect]
     Active Substance: RUXOLITINIB
     Dosage: 10 MG, QD
     Route: 048
     Dates: start: 20180807, end: 20181001
  45. CHLORPHENIRAMINE [CHLORPHENAMINE] [Concomitant]
     Active Substance: CHLORPHENIRAMINE
     Dosage: 5 MG (AMPOULE)
     Route: 042
     Dates: start: 20180403, end: 20180403
  46. CHLORPHENIRAMINE [CHLORPHENAMINE] [Concomitant]
     Active Substance: CHLORPHENIRAMINE
     Dosage: 5 MG (AMPOULE)
     Route: 042
     Dates: start: 20180502, end: 20180502
  47. CHLORPHENIRAMINE [CHLORPHENAMINE] [Concomitant]
     Active Substance: CHLORPHENIRAMINE
     Dosage: 5 MG (AMPOULE)
     Route: 042
     Dates: start: 20180530, end: 20180530
  48. CHLORPHENIRAMINE [CHLORPHENAMINE] [Concomitant]
     Active Substance: CHLORPHENIRAMINE
     Dosage: 5 MG (AMPOULE)
     Route: 042
     Dates: start: 20181220, end: 20181220
  49. CHLORPHENIRAMINE [CHLORPHENAMINE] [Concomitant]
     Active Substance: CHLORPHENIRAMINE
     Dosage: 5 MG (AMPOULE)
     Route: 042
     Dates: start: 20190521, end: 20190521
  50. CHLORPHENIRAMINE [CHLORPHENAMINE] [Concomitant]
     Active Substance: CHLORPHENIRAMINE
     Dosage: 5 MG (AMPOULE)
     Route: 042
     Dates: start: 20190716, end: 20190716
  51. CHLORPHENIRAMINE [CHLORPHENAMINE] [Concomitant]
     Active Substance: CHLORPHENIRAMINE
     Dosage: 5 MG (AMPOULE)
     Route: 042
     Dates: start: 20191203, end: 20191203
  52. DENOSUMAB [Concomitant]
     Active Substance: DENOSUMAB
     Indication: OSTEOPOROSIS
     Dosage: 60 MG (VIAL)
     Route: 058
     Dates: start: 20190227, end: 20190227
  53. FEBUXOSTAT. [Concomitant]
     Active Substance: FEBUXOSTAT
     Dosage: 40 MG
     Route: 048
     Dates: start: 20181219, end: 20190115
  54. INSULIN DETEMIR [Concomitant]
     Active Substance: INSULIN DETEMIR
     Dosage: UNK (DOSE 18)
     Route: 058
     Dates: start: 20190104, end: 20190617
  55. INSULIN DETEMIR [Concomitant]
     Active Substance: INSULIN DETEMIR
     Dosage: 18 U
     Route: 058
     Dates: start: 20190822, end: 20190822
  56. INSULIN DETEMIR [Concomitant]
     Active Substance: INSULIN DETEMIR
     Dosage: 12 U
     Route: 058
     Dates: start: 20190825, end: 20190901
  57. LINAGLIPTIN [Concomitant]
     Active Substance: LINAGLIPTIN
     Dosage: 5 MG
     Route: 048
     Dates: start: 20181225, end: 20190116
  58. LOPERAMIDE [Concomitant]
     Active Substance: LOPERAMIDE
     Indication: DIARRHOEA
     Dosage: 2 MG
     Route: 048
     Dates: start: 20191206, end: 20191206
  59. SAROTEN [Concomitant]
     Active Substance: AMITRIPTYLINE
     Indication: INSOMNIA
     Dosage: 50 MG
     Route: 048
     Dates: start: 20180412, end: 20180510
  60. ZOPICLONE [Concomitant]
     Active Substance: ZOPICLONE
     Indication: INSOMNIA
     Dosage: 7.5 MG
     Route: 048
     Dates: start: 20181218, end: 20181220
  61. FUROSEMIDE;POTASSIUM CHLORIDE [Concomitant]
     Active Substance: FUROSEMIDE\POTASSIUM CHLORIDE
     Indication: OEDEMA
     Dosage: 40 MG
     Route: 048
     Dates: start: 20181229, end: 20181229
  62. LACTAMAX [Concomitant]
     Indication: PYREXIA
     Dosage: 500 MG
     Route: 048
     Dates: start: 20181218, end: 20181218
  63. ACETAMINOPHEN. [Concomitant]
     Active Substance: ACETAMINOPHEN
     Dosage: 500 MG
     Route: 048
     Dates: start: 20190818, end: 20190820
  64. CEFAZOLIN [Concomitant]
     Active Substance: CEFAZOLIN
     Indication: OSTEOPOROSIS
     Dosage: 1 G (1G/VIAL)
     Route: 042
     Dates: start: 20190818, end: 20190819
  65. METRONIDAZOLE. [Concomitant]
     Active Substance: METRONIDAZOLE
     Indication: PYREXIA
     Dosage: 500 MG
     Route: 048
     Dates: start: 20181220, end: 20181224
  66. POTASSIUM GLUCONATE [Concomitant]
     Active Substance: POTASSIUM GLUCONATE
     Indication: PYREXIA
     Dosage: 1190 MG
     Route: 048
     Dates: start: 20191206, end: 20191210
  67. TAPIMYCIN [Concomitant]
     Indication: PYREXIA
     Dosage: 4.5 G (VIAL)
     Route: 042
     Dates: start: 20181220, end: 20181224
  68. CHLORPHENIRAMINE [CHLORPHENAMINE] [Concomitant]
     Active Substance: CHLORPHENIRAMINE
     Indication: ALLERGY PROPHYLAXIS
     Dosage: 5 MG (AMPOULE)
     Route: 042
     Dates: start: 20180307, end: 20180307
  69. CHLORPHENIRAMINE [CHLORPHENAMINE] [Concomitant]
     Active Substance: CHLORPHENIRAMINE
     Dosage: 5 MG (AMPOULE)
     Route: 042
     Dates: start: 20190104, end: 20190104
  70. CHLORPHENIRAMINE [CHLORPHENAMINE] [Concomitant]
     Active Substance: CHLORPHENIRAMINE
     Dosage: 5 MG (AMPOULE)
     Route: 042
     Dates: start: 20190115, end: 20190115
  71. CHLORPHENIRAMINE [CHLORPHENAMINE] [Concomitant]
     Active Substance: CHLORPHENIRAMINE
     Dosage: 5 MG (AMPOULE)
     Route: 042
     Dates: start: 20190121, end: 20190121
  72. CHLORPHENIRAMINE [CHLORPHENAMINE] [Concomitant]
     Active Substance: CHLORPHENIRAMINE
     Dosage: 5 MG (AMPOULE)
     Route: 042
     Dates: start: 20190618, end: 20190618
  73. CIMETIDINE [Concomitant]
     Active Substance: CIMETIDINE
     Indication: VOMITING
     Dosage: 200 MG (AMP)
     Route: 042
     Dates: start: 20191203
  74. DEFERASIROX. [Concomitant]
     Active Substance: DEFERASIROX
     Indication: MYELOFIBROSIS
     Dosage: 875 MG
     Route: 048
     Dates: start: 20180110, end: 20180501
  75. ESTAZOLAM. [Concomitant]
     Active Substance: ESTAZOLAM
     Indication: INSOMNIA
     Dosage: 1 MG
     Route: 048
     Dates: start: 20181222, end: 20181223
  76. EURODIN [ESTAZOLAM] [Concomitant]
     Active Substance: ESTAZOLAM
     Dosage: 4 MG
     Route: 048
     Dates: start: 20180704, end: 20180801
  77. EURODIN [ESTAZOLAM] [Concomitant]
     Active Substance: ESTAZOLAM
     Dosage: 4 MG
     Route: 048
     Dates: start: 20180926, end: 20181024
  78. INSULIN DETEMIR [Concomitant]
     Active Substance: INSULIN DETEMIR
     Dosage: 12 U
     Route: 058
     Dates: start: 20190910, end: 20190916
  79. INSULIN DETEMIR [Concomitant]
     Active Substance: INSULIN DETEMIR
     Dosage: 12 U
     Route: 058
     Dates: start: 20191009
  80. PROLIA [Concomitant]
     Active Substance: DENOSUMAB
     Dosage: 60 MG (VIAL)
     Route: 058
     Dates: start: 20180815, end: 20180815
  81. SAROTEN [Concomitant]
     Active Substance: AMITRIPTYLINE
     Dosage: 50 MG
     Route: 048
     Dates: start: 20181219, end: 20190115
  82. SENNOSIDE A+B [Concomitant]
     Active Substance: SENNOSIDES A AND B
     Dosage: 24 MG
     Route: 048
     Dates: start: 20190910, end: 20190911
  83. THROUGH [Concomitant]
     Indication: CONSTIPATION
     Dosage: 24 MG
     Route: 048
     Dates: start: 20181127, end: 20181211
  84. ZOLPIDEM TARTRATE. [Concomitant]
     Active Substance: ZOLPIDEM TARTRATE
     Indication: INSOMNIA
     Dosage: 6.25 MG
     Route: 048
     Dates: start: 20191009, end: 20191202
  85. FUROSEMIDE;POTASSIUM CHLORIDE [Concomitant]
     Active Substance: FUROSEMIDE\POTASSIUM CHLORIDE
     Indication: PYREXIA
     Dosage: 40 MG
     Route: 048
     Dates: start: 20180403, end: 20180501
  86. ACETAMINOPHEN. [Concomitant]
     Active Substance: ACETAMINOPHEN
     Dosage: 500 MG
     Route: 065
     Dates: start: 20190921, end: 20190924
  87. ACETYLCYSTEINE;PARACETAMOL [Concomitant]
     Indication: PYREXIA
     Dosage: 600 MG
     Route: 048
     Dates: start: 20181226, end: 20190104
  88. CIPROFLOXACIN;HYDROCORTISONE [Concomitant]
     Indication: PYREXIA
     Dosage: 400 MG (BOT)
     Route: 042
     Dates: start: 20190819, end: 20190822
  89. ERTAPENEM. [Concomitant]
     Active Substance: ERTAPENEM SODIUM
     Indication: URINARY TRACT INFECTION
     Dosage: UNK
     Route: 042
     Dates: start: 20190917, end: 20190921
  90. CALCIUM CARBONATE. [Concomitant]
     Active Substance: CALCIUM CARBONATE
     Indication: URINARY TRACT INFECTION
     Dosage: 500 MG
     Route: 048
     Dates: start: 20190920, end: 20191001
  91. JAKAVI [Suspect]
     Active Substance: RUXOLITINIB
     Dosage: 10 MG, QD
     Route: 048
     Dates: start: 20180627, end: 20180719
  92. JAKAVI [Suspect]
     Active Substance: RUXOLITINIB
     Dosage: 20 MG, QD
     Route: 048
     Dates: start: 20190423
  93. CHLORPHENIRAMINE [CHLORPHENAMINE] [Concomitant]
     Active Substance: CHLORPHENIRAMINE
     Dosage: 5 MG (AMPOULE)
     Route: 042
     Dates: start: 20180627, end: 20180627
  94. DEFERASIROX. [Concomitant]
     Active Substance: DEFERASIROX
     Dosage: 625 MG
     Route: 048
     Dates: start: 20181127, end: 20190114
  95. DEFERASIROX. [Concomitant]
     Active Substance: DEFERASIROX
     Dosage: 125 MG
     Route: 048
     Dates: start: 20190118, end: 20190121
  96. DEFERASIROX. [Concomitant]
     Active Substance: DEFERASIROX
     Dosage: 875 MG
     Route: 048
     Dates: start: 20190212, end: 20190311
  97. DEFERASIROX. [Concomitant]
     Active Substance: DEFERASIROX
     Dosage: 750 MG
     Route: 048
     Dates: start: 20190716
  98. DEXTASONE [Concomitant]
     Indication: VOMITING
     Dosage: UNK (5/244 MG)
     Route: 048
     Dates: start: 20191206, end: 20191211
  99. EURODIN [ESTAZOLAM] [Concomitant]
     Active Substance: ESTAZOLAM
     Indication: INSOMNIA
     Dosage: 4 MG
     Route: 065
     Dates: start: 20180412, end: 20180510
  100. INSULIN DETEMIR [Concomitant]
     Active Substance: INSULIN DETEMIR
     Dosage: UNK (DOSE 20)
     Route: 058
     Dates: start: 20181002, end: 20181224
  101. INSULIN [Concomitant]
     Active Substance: INSULIN NOS
     Dosage: 8 U
     Route: 042
     Dates: start: 20181218, end: 20181229
  102. INSULIN [Concomitant]
     Active Substance: INSULIN NOS
     Dosage: 4 U
     Route: 042
     Dates: start: 20181230, end: 20190104
  103. INSULIN [Concomitant]
     Active Substance: INSULIN NOS
     Dosage: 2 U (VIAL)
     Route: 058
     Dates: start: 20191204, end: 20191204
  104. KINZOLAM [Concomitant]
     Active Substance: ESTAZOLAM
     Indication: INSOMNIA
     Dosage: 4 MG
     Route: 048
     Dates: start: 20190306, end: 20190403
  105. PROLIA [Concomitant]
     Active Substance: DENOSUMAB
     Indication: OSTEOPOROSIS
     Dosage: 60 MG (VIAL)
     Route: 058
     Dates: start: 20180212, end: 20180212
  106. SITAGLIPTIN METFORMIN [Concomitant]
     Active Substance: METFORMIN HYDROCHLORIDE\SITAGLIPTIN PHOSPHATE
     Indication: DIABETES MELLITUS
     Dosage: UNK
     Route: 048
     Dates: start: 20190813, end: 20190818
  107. ACETAMINOPHEN. [Concomitant]
     Active Substance: ACETAMINOPHEN
     Dosage: 500 MG
     Route: 048
     Dates: start: 20190916, end: 20190916
  108. ACETYLCYSTEINE;PARACETAMOL [Concomitant]
     Dosage: 600 MG
     Route: 048
     Dates: start: 20190115, end: 20190128
  109. ERTAPENEM. [Concomitant]
     Active Substance: ERTAPENEM SODIUM
     Indication: PYREXIA
     Dosage: UNK (1 GM/ VIAL)
     Route: 042
     Dates: start: 20190822, end: 20190902
  110. ERTAPENEM. [Concomitant]
     Active Substance: ERTAPENEM SODIUM
     Dosage: 1 GM/ VIAL
     Route: 042
     Dates: start: 20191007, end: 20191008
  111. JAKAVI [Suspect]
     Active Substance: RUXOLITINIB
     Indication: MYELOFIBROSIS
     Dosage: 20 MG
     Route: 048
     Dates: start: 20180207
  112. CHLORPHENIRAMINE [CHLORPHENAMINE] [Concomitant]
     Active Substance: CHLORPHENIRAMINE
     Dosage: 5 MG (AMPOULE)
     Route: 042
     Dates: start: 20190312, end: 20190312
  113. DAILYCARE ACTIBEST [Concomitant]
     Indication: CHRONIC KIDNEY DISEASE
     Dosage: UNK
     Route: 048
     Dates: start: 20170306, end: 20191029
  114. FEBUXOSTAT. [Concomitant]
     Active Substance: FEBUXOSTAT
     Indication: GOUT
     Dosage: 40 MG
     Route: 048
     Dates: start: 20181218, end: 20190104
  115. GENTAMICIN. [Concomitant]
     Active Substance: GENTAMICIN
     Indication: PRODUCT USED FOR UNKNOWN INDICATION
     Dosage: UNK (5 GM/ TAB)
     Route: 061
     Dates: start: 20190102, end: 20190103
  116. GLIPIZIDE;METFORMIN [Concomitant]
     Active Substance: GLIPIZIDE\METFORMIN HYDROCHLORIDE
     Indication: PRODUCT USED FOR UNKNOWN INDICATION
     Dosage: 5 MG
     Route: 048
     Dates: start: 20180904
  117. GLIPIZIDE;METFORMIN [Concomitant]
     Active Substance: GLIPIZIDE\METFORMIN HYDROCHLORIDE
     Dosage: 5 MG
     Route: 048
     Dates: start: 20191009, end: 20191202
  118. INSULIN [Concomitant]
     Active Substance: INSULIN NOS
     Indication: DIABETES MELLITUS
     Dosage: 10 U
     Route: 042
     Dates: start: 20181218, end: 20181218
  119. SENNOSIDE A+B [Concomitant]
     Active Substance: SENNOSIDES A AND B
     Dosage: 12 MG
     Route: 048
     Dates: start: 20190910, end: 20191202
  120. SITAGLIPTIN [Concomitant]
     Active Substance: SITAGLIPTIN
     Indication: DIABETES MELLITUS
     Dosage: 100 MG
     Route: 048
     Dates: start: 20190820, end: 20190902
  121. ZOLPIDEM [Concomitant]
     Active Substance: ZOLPIDEM TARTRATE
     Indication: INSOMNIA
     Dosage: 10 MG
     Route: 048
     Dates: start: 20181222, end: 20181223
  122. CEFTIBUTEN. [Concomitant]
     Active Substance: CEFTIBUTEN
     Indication: PYREXIA
     Dosage: 200 MG
     Route: 048
     Dates: start: 20191008, end: 20191014
  123. EPINEPHRINE;LIDOCAINE HYDROCHLORIDE [Concomitant]
     Active Substance: EPINEPHRINE\LIDOCAINE HYDROCHLORIDE
     Indication: PYREXIA
     Dosage: 1 MG (AMP)
     Route: 065
     Dates: start: 20181226, end: 20181226
  124. TAZOCIN [Concomitant]
     Active Substance: PIPERACILLIN SODIUM\TAZOBACTAM SODIUM
     Dosage: 2.25 G
     Route: 042
     Dates: start: 20190115, end: 20190116
  125. ALPRAZOLAM. [Concomitant]
     Active Substance: ALPRAZOLAM
     Dosage: 0.5 MG
     Route: 048
     Dates: start: 20190916, end: 20191210
  126. CHLORPHENIRAMINE [CHLORPHENAMINE] [Concomitant]
     Active Substance: CHLORPHENIRAMINE
     Dosage: 5 MG (AMPOULE)
     Route: 042
     Dates: start: 20180110, end: 20180110
  127. CHLORPHENIRAMINE [CHLORPHENAMINE] [Concomitant]
     Active Substance: CHLORPHENIRAMINE
     Dosage: 5 MG (AMPOULE)
     Route: 042
     Dates: start: 20190423, end: 20190423
  128. DEFERASIROX. [Concomitant]
     Active Substance: DEFERASIROX
     Dosage: 625 MG
     Route: 048
     Dates: start: 20190618, end: 20190715
  129. EXJADE [Concomitant]
     Active Substance: DEFERASIROX
     Indication: MYELOFIBROSIS
     Dosage: 1000 MG
     Route: 048
     Dates: start: 20180502, end: 20180626
  130. INSULIN DETEMIR [Concomitant]
     Active Substance: INSULIN DETEMIR
     Indication: DIABETES MELLITUS
     Dosage: 16 U (16 U/ CAR)
     Route: 058
     Dates: start: 20180206, end: 20181007
  131. INSULIN DETEMIR [Concomitant]
     Active Substance: INSULIN DETEMIR
     Dosage: 22 U
     Route: 058
     Dates: start: 20190618, end: 20190821
  132. INSULIN DETEMIR [Concomitant]
     Active Substance: INSULIN DETEMIR
     Dosage: 14 U
     Route: 058
     Dates: start: 20190823, end: 20190824
  133. SITAGLIPTIN METFORMIN [Concomitant]
     Active Substance: METFORMIN HYDROCHLORIDE\SITAGLIPTIN PHOSPHATE
     Dosage: UNK
     Route: 048
     Dates: start: 20190910, end: 20190918
  134. ACETAMINOPHEN. [Concomitant]
     Active Substance: ACETAMINOPHEN
     Indication: PYREXIA
     Dosage: 500 MG
     Route: 048
     Dates: start: 20181226, end: 20181227
  135. ACETAMINOPHEN. [Concomitant]
     Active Substance: ACETAMINOPHEN
     Dosage: 500 MG
     Route: 048
     Dates: start: 20190115, end: 20190115
  136. CIPROFLOXACIN;HYDROCORTISONE [Concomitant]
     Dosage: 500 MG (TABLET)
     Route: 048
     Dates: start: 20190121, end: 20190127
  137. DIMETHICONE. [Concomitant]
     Active Substance: DIMETHICONE
     Indication: URINARY TRACT INFECTION
     Dosage: 40 MG
     Route: 048
     Dates: start: 20190829, end: 20190902
  138. IPRATROPIUM BROMIDE AND SALBUTAMOL SULFATE [Concomitant]
     Active Substance: ALBUTEROL SULFATE\IPRATROPIUM BROMIDE
     Indication: PYREXIA
     Dosage: UNK (0.5/3 MG, VIAL)
     Route: 055
     Dates: start: 20181218, end: 20181218
  139. CHLORPHENIRAMINE [CHLORPHENAMINE] [Concomitant]
     Active Substance: CHLORPHENIRAMINE
     Dosage: 5 MG (AMPOULE)
     Route: 042
     Dates: start: 20181127, end: 20181127
  140. CHLORPHENIRAMINE [CHLORPHENAMINE] [Concomitant]
     Active Substance: CHLORPHENIRAMINE
     Dosage: 5 MG (AMPOULE)
     Route: 042
     Dates: start: 20190409, end: 20190409
  141. CHLORPHENIRAMINE [CHLORPHENAMINE] [Concomitant]
     Active Substance: CHLORPHENIRAMINE
     Dosage: 5 MG (AMPOULE)
     Route: 042
     Dates: start: 20190813, end: 20190813
  142. CHLORPHENIRAMINE [CHLORPHENAMINE] [Concomitant]
     Active Substance: CHLORPHENIRAMINE
     Dosage: 5 MG (AMPOULE)
     Route: 042
     Dates: start: 20190918, end: 20190918
  143. CALCIUM ACETATE. [Concomitant]
     Active Substance: CALCIUM ACETATE
     Indication: DIARRHOEA
     Dosage: 667 MG
     Route: 048
     Dates: start: 20191208, end: 20191211
  144. EURODIN [ESTAZOLAM] [Concomitant]
     Active Substance: ESTAZOLAM
     Dosage: 4 MG
     Route: 048
     Dates: start: 20181219, end: 20190115
  145. HYDROCORTISONE. [Concomitant]
     Active Substance: HYDROCORTISONE
     Indication: ALLERGY PROPHYLAXIS
     Dosage: 100 MG (PER VIAL)
     Route: 042
     Dates: start: 20191008, end: 20191008
  146. INSULIN DETEMIR [Concomitant]
     Active Substance: INSULIN DETEMIR
     Dosage: UNK (DOSE 20 MG)
     Route: 058
     Dates: start: 20190103, end: 20190103
  147. LINAGLIPTIN [Concomitant]
     Active Substance: LINAGLIPTIN
     Indication: DIABETES MELLITUS
     Dosage: 5 MG
     Route: 048
     Dates: start: 20180110, end: 20180529
  148. LOPERAMIDE [Concomitant]
     Active Substance: LOPERAMIDE
     Dosage: 4 MG
     Route: 048
     Dates: start: 20161212, end: 20180402
  149. PROCHLORPERAZINE. [Concomitant]
     Active Substance: PROCHLORPERAZINE
     Indication: VOMITING
     Dosage: 5 MG
     Route: 048
     Dates: start: 20191204, end: 20191209
  150. SAROTEN [Concomitant]
     Active Substance: AMITRIPTYLINE
     Dosage: 50 MG
     Route: 048
     Dates: start: 20180704, end: 20180801
  151. SENNOSIDE A+B [Concomitant]
     Active Substance: SENNOSIDES A AND B
     Indication: CONSTIPATION
     Dosage: 12 MG
     Route: 048
     Dates: start: 20190827, end: 20190901
  152. URSODEOXYCHOLIC AC [Concomitant]
     Indication: CHOLELITHIASIS
     Dosage: 100 MG
     Route: 048
     Dates: start: 20190117, end: 20190121
  153. ZOPICLONE [Concomitant]
     Active Substance: ZOPICLONE
     Dosage: 7.5 MG
     Route: 048
     Dates: start: 20190920, end: 20191001
  154. LACTATED RINGERS SOLUTION [Concomitant]
     Active Substance: CALCIUM CHLORIDE\POTASSIUM CHLORIDE\SODIUM CHLORIDE\SODIUM LACTATE
     Indication: PYREXIA
     Dosage: 1000 ML
     Route: 042
     Dates: start: 20181218, end: 20181218
  155. AMBROXOL [Concomitant]
     Active Substance: AMBROXOL
     Indication: PYREXIA
     Dosage: 75 MG
     Route: 048
     Dates: start: 20181226, end: 20190104
  156. ACETAMINOPHEN. [Concomitant]
     Active Substance: ACETAMINOPHEN
     Dosage: 500 MG
     Route: 048
     Dates: start: 20191226, end: 20191227
  157. BENZONATATE. [Concomitant]
     Active Substance: BENZONATATE
     Indication: PYREXIA
     Dosage: 100 MG
     Route: 048
     Dates: start: 20190115, end: 20190117
  158. CEFAZOLIN [Concomitant]
     Active Substance: CEFAZOLIN
     Indication: PYREXIA
     Dosage: UNK (1 GM/ VIAL)
     Route: 042
     Dates: start: 20181224, end: 20181226
  159. CEFEPIME;LEVOFLOXACIN [Concomitant]
     Indication: PYREXIA
     Dosage: 2000 MG (VIAL)
     Route: 042
     Dates: start: 20191203, end: 20191209
  160. CODEINE [Concomitant]
     Active Substance: CODEINE
     Indication: PYREXIA
     Dosage: 30 MG
     Route: 048
     Dates: start: 20181225, end: 20190115
  161. DEXAMETHASONE. [Concomitant]
     Active Substance: DEXAMETHASONE
     Indication: PYREXIA
     Dosage: 5 MG (VIAL)
     Route: 042
     Dates: start: 20191203, end: 20191203
  162. FLOMOXEF [Concomitant]
     Active Substance: FLOMOXEF
     Indication: PYREXIA
     Dosage: UNK (1 G VIAL)
     Route: 042
     Dates: start: 20190117, end: 20190121

REACTIONS (4)
  - Cytopenia [Recovered/Resolved]
  - Oedema [Recovered/Resolved]
  - Oedema [Recovered/Resolved]
  - Thrombocytopenia [Recovered/Resolved]

NARRATIVE: CASE EVENT DATE: 20180320
